FAERS Safety Report 20691826 (Version 2)
Quarter: 2022Q3

REPORT INFORMATION
  Report Type: Spontaneous
  Country: JP (occurrence: JP)
  Receive Date: 20220408
  Receipt Date: 20220707
  Transmission Date: 20221027
  Serious: Yes (Hospitalization, Other)
  Sender: FDA-Public Use
  Company Number: JP-GILEAD-2022-0576530

PATIENT
  Age: 55 Year
  Sex: Male
  Weight: 76.8 kg

DRUGS (17)
  1. EPCLUSA [Suspect]
     Active Substance: SOFOSBUVIR\VELPATASVIR
     Indication: Hepatitis C
     Dosage: VELPATASVIR 100 MG DAILY AND SOFOSBUVIR 400 MG DAILY
     Route: 065
  2. EPCLUSA [Suspect]
     Active Substance: SOFOSBUVIR\VELPATASVIR
     Indication: Hepatic cirrhosis
  3. VEKLURY [Suspect]
     Active Substance: REMDESIVIR
     Indication: COVID-19 pneumonia
     Dosage: 200-400 MG
     Route: 065
  4. DEXAMETHASONE [Concomitant]
     Active Substance: DEXAMETHASONE
     Indication: COVID-19 pneumonia
     Dosage: 6 MG/ DAY
  5. URSODIOL [Concomitant]
     Active Substance: URSODIOL
     Indication: Liver disorder
     Dosage: 600 MG/ DAY
  6. RIFAXIMIN [Concomitant]
     Active Substance: RIFAXIMIN
     Indication: Hepatic encephalopathy
     Dosage: 1200 MG /DAY
  7. LACTULOSE [Concomitant]
     Active Substance: LACTULOSE
     Indication: Hepatic encephalopathy
     Dosage: 10 ML/ DAY
  8. EPLERENONE [Concomitant]
     Active Substance: EPLERENONE
     Indication: Ascites
     Dosage: 100 MG/ DAY
  9. AZOSEMIDE [Concomitant]
     Active Substance: AZOSEMIDE
     Indication: Ascites
     Dosage: 30 MG/ DAY
  10. TOLVAPTAN [Concomitant]
     Active Substance: TOLVAPTAN
     Indication: Ascites
     Dosage: 7.5 MG/ DAY
  11. POTASSIUM CHLORIDE [Concomitant]
     Active Substance: POTASSIUM CHLORIDE
     Indication: Gastric disorder
     Dosage: 1200 MG/ DAY
  12. VONOPRAZAN FUMARATE [Concomitant]
     Active Substance: VONOPRAZAN FUMARATE
     Indication: Gastric disorder
     Dosage: 10 MG/ DAY
  13. METHYLPREDNISOLONE [Concomitant]
     Active Substance: METHYLPREDNISOLONE
     Dosage: 80 MG/ DAY
  14. PIPERACILLIN SODIUM\TAZOBACTAM SODIUM [Concomitant]
     Active Substance: PIPERACILLIN SODIUM\TAZOBACTAM SODIUM
     Dosage: 13.5 G/ DAY
  15. AZITHROMYCIN [Concomitant]
     Active Substance: AZITHROMYCIN
     Dosage: 500 MG/ DAY
  16. CEFTRIAXONE SODIUM [Concomitant]
     Active Substance: CEFTRIAXONE SODIUM
     Dosage: 2 G/DAY
  17. VORICONAZOLE [Concomitant]
     Active Substance: VORICONAZOLE
     Dosage: 400 MG/ DAY

REACTIONS (5)
  - COVID-19 pneumonia [Unknown]
  - COVID-19 pneumonia [Unknown]
  - COVID-19 [Unknown]
  - Cardiac arrest [Recovering/Resolving]
  - Off label use [Unknown]
